FAERS Safety Report 8486097-0 (Version None)
Quarter: 2012Q3

REPORT INFORMATION
  Report Type: 
  Country: None (occurrence: None)
  Receive Date: 20120703
  Receipt Date: 20120626
  Transmission Date: 20120928
  Serious: Yes (Other)
  Sender: FDA-Public Use
  Company Number: US-BAXTER-2012BAX008864

PATIENT
  Sex: Female
  Weight: 90.5 kg

DRUGS (7)
  1. KLONOPIN [Concomitant]
     Route: 048
  2. TOPAMAX [Concomitant]
     Route: 048
  3. GAMMAGARD LIQUID [Suspect]
  4. CYMBALTA [Concomitant]
     Route: 048
  5. POTASSIUM CITRATE [Concomitant]
     Route: 048
  6. DILAUDID [Concomitant]
     Route: 048
  7. GAMMAGARD LIQUID [Suspect]
     Dosage: 1 DOSE
     Route: 042
     Dates: start: 20120214, end: 20120214

REACTIONS (5)
  - DYSPNOEA [None]
  - PALLOR [None]
  - ANAPHYLACTIC REACTION [None]
  - HYPOTENSION [None]
  - CYANOSIS [None]
